FAERS Safety Report 5783184-2 (Version None)
Quarter: 2008Q2

REPORT INFORMATION
  Report Type: 
  Country: None (occurrence: None)
  Receive Date: 20080619
  Receipt Date: 20080604
  Transmission Date: 20081010
  Serious: Yes (Death, Other)
  Sender: FDA-Public Use
  Company Number: 2008BI011025

PATIENT
  Sex: Female

DRUGS (2)
  1. ZEVALIN [Suspect]
     Indication: B-CELL LYMPHOMA
     Dosage: 15 MBQ/KG; IV
     Route: 042
     Dates: start: 20060301
  2. RITUXIMAB [Concomitant]

REACTIONS (8)
  - ACUTE MYELOID LEUKAEMIA [None]
  - ANAEMIA [None]
  - BLOOD LACTATE DEHYDROGENASE INCREASED [None]
  - CEREBRAL HAEMORRHAGE [None]
  - HEADACHE [None]
  - SPLENOMEGALY [None]
  - SUBARACHNOID HAEMORRHAGE [None]
  - THROMBOCYTOPENIA [None]
